FAERS Safety Report 9606862 (Version 1)
Quarter: 2013Q4

REPORT INFORMATION
  Report Type: Spontaneous
  Country: US (occurrence: US)
  Receive Date: 20131008
  Receipt Date: 20131008
  Transmission Date: 20140711
  Serious: No
  Sender: FDA-Public Use
  Company Number: US-AMGEN-USASP2013061332

PATIENT
  Age: 76 Year
  Sex: Female

DRUGS (16)
  1. PROLIA [Suspect]
     Indication: PRODUCT USED FOR UNKNOWN INDICATION
     Dosage: UNK
     Route: 065
  2. IMURAN                             /00001501/ [Concomitant]
     Dosage: UNK
     Route: 065
  3. PROGRAF [Concomitant]
     Dosage: UNK
     Route: 065
  4. CALCIUM + VITAMIN D [Concomitant]
     Dosage: UNK
     Route: 065
  5. HYDRALAZINE [Concomitant]
     Dosage: UNK
     Route: 065
  6. MAGNESIUM OXIDE [Concomitant]
     Dosage: UNK
     Route: 065
  7. COMBIGAN [Concomitant]
     Dosage: UNK
     Route: 065
  8. MULTIVITAMIN                       /00097801/ [Concomitant]
     Dosage: UNK
     Route: 065
  9. ZAROXOLYN [Concomitant]
     Dosage: UNK
     Route: 065
  10. ALDACTONE                          /00006201/ [Concomitant]
     Dosage: UNK
     Route: 065
  11. SODIUM BICARBONATE [Concomitant]
     Dosage: UNK
     Route: 065
  12. DUROGESIC [Concomitant]
     Dosage: UNK
     Route: 065
  13. CALCITRIOL [Concomitant]
     Dosage: UNK
     Route: 065
  14. LOMOTIL                            /00034001/ [Concomitant]
     Dosage: UNK
     Route: 065
  15. LASIX                              /00032601/ [Concomitant]
     Dosage: UNK
     Route: 065
  16. VICODIN [Concomitant]
     Dosage: UNK
     Route: 065

REACTIONS (3)
  - Back pain [Unknown]
  - Hypoaesthesia [Unknown]
  - Multiple fractures [Unknown]
